FAERS Safety Report 19087557 (Version 1)
Quarter: 2021Q2

REPORT INFORMATION
  Report Type: Spontaneous
  Country: US (occurrence: US)
  Receive Date: 20210402
  Receipt Date: 20210402
  Transmission Date: 20210717
  Serious: Yes (Hospitalization)
  Sender: FDA-Public Use
  Company Number: US-UPSHER-SMITH LABORATORIES, LLC-2021USL00073

PATIENT
  Sex: Female

DRUGS (1)
  1. VIGADRONE [Suspect]
     Active Substance: VIGABATRIN

REACTIONS (1)
  - Seizure [Unknown]
